FAERS Safety Report 23270884 (Version 1)
Quarter: 2023Q4

REPORT INFORMATION
  Report Type: Spontaneous
  Country: US (occurrence: None)
  Receive Date: 20231206
  Receipt Date: 20231206
  Transmission Date: 20240109
  Serious: Yes (Death)
  Sender: FDA-Public Use
  Company Number: None

PATIENT
  Age: 70 Year
  Sex: Female

DRUGS (10)
  1. AMBRISENTAN [Suspect]
     Active Substance: AMBRISENTAN
     Indication: Pulmonary arterial hypertension
     Dosage: 5MG QD ORAL
     Route: 048
     Dates: start: 20190820, end: 20231013
  2. oxygen intranasal [Concomitant]
  3. DILTIAZEM [Concomitant]
     Active Substance: DILTIAZEM
  4. LORAZEPAM [Concomitant]
     Active Substance: LORAZEPAM
  5. DABIGATRAN [Concomitant]
     Active Substance: DABIGATRAN
  6. LEVOTHYROXINE [Concomitant]
     Active Substance: LEVOTHYROXINE
  7. CALCITRIOL [Concomitant]
     Active Substance: CALCITRIOL
  8. FUROSEMIDE [Concomitant]
     Active Substance: FUROSEMIDE
  9. SENNOSIDES [Concomitant]
     Active Substance: SENNOSIDES
  10. DUONEB INH NEB [Concomitant]

REACTIONS (2)
  - Oedema peripheral [None]
  - Dyspnoea [None]

NARRATIVE: CASE EVENT DATE: 20231013
